FAERS Safety Report 7781818-4 (Version None)
Quarter: 2011Q3

REPORT INFORMATION
  Report Type: 
  Country: None (occurrence: None)
  Receive Date: 20110927
  Receipt Date: 20110921
  Transmission Date: 20111222
  Serious: Yes (Other)
  Sender: FDA-Public Use
  Company Number: NL-GLAXOSMITHKLINE-B0750319A

PATIENT
  Sex: Male
  Weight: 77 kg

DRUGS (3)
  1. TAMSULOSIN HYDROCHLORIDE [Suspect]
     Indication: BENIGN PROSTATIC HYPERPLASIA
     Dosage: .4MG TWICE PER DAY
     Route: 048
     Dates: start: 20090101
  2. FEXOFENADINE [Concomitant]
     Dosage: 180MG PER DAY
     Route: 048
     Dates: start: 20110606
  3. AVODART [Suspect]
     Indication: BENIGN PROSTATIC HYPERPLASIA
     Dosage: .5MG PER DAY
     Route: 048
     Dates: start: 20110909, end: 20110912

REACTIONS (3)
  - ABDOMINAL PAIN UPPER [None]
  - HEADACHE [None]
  - ANGIOEDEMA [None]
